FAERS Safety Report 9670112 (Version 1)
Quarter: 2013Q4

REPORT INFORMATION
  Report Type: Spontaneous
  Country: US (occurrence: US)
  Receive Date: 20131105
  Receipt Date: 20131105
  Transmission Date: 20140711
  Serious: No
  Sender: FDA-Public Use
  Company Number: US-PFIZER INC-2013314598

PATIENT
  Age: 59 Year
  Sex: Female
  Weight: 77.1 kg

DRUGS (2)
  1. LYRICA [Suspect]
     Indication: FIBROMYALGIA
     Dosage: UNK
     Dates: start: 2009, end: 2009
  2. OXYCODONE [Concomitant]
     Indication: FIBROMYALGIA
     Dosage: 500 MG, 3X/DAY

REACTIONS (5)
  - Dizziness [Unknown]
  - Feeling drunk [Unknown]
  - Abdominal discomfort [Unknown]
  - Impaired driving ability [Unknown]
  - Weight increased [Unknown]
